FAERS Safety Report 17765708 (Version 1)
Quarter: 2020Q2

REPORT INFORMATION
  Report Type: Spontaneous
  Country: US (occurrence: US)
  Receive Date: 20200509
  Receipt Date: 20200509
  Transmission Date: 20200714
  Serious: Yes (Hospitalization)
  Sender: FDA-Public Use
  Company Number: None

PATIENT
  Age: 57 Year
  Sex: Male
  Weight: 104.3 kg

DRUGS (1)
  1. ERBITUX [Suspect]
     Active Substance: CETUXIMAB
     Dates: end: 20200429

REACTIONS (6)
  - Sepsis [None]
  - Chills [None]
  - Systemic inflammatory response syndrome [None]
  - Tachycardia [None]
  - Pyrexia [None]
  - Tachypnoea [None]

NARRATIVE: CASE EVENT DATE: 20200429
